FAERS Safety Report 5782062-2 (Version None)
Quarter: 2008Q2

REPORT INFORMATION
  Report Type: 
  Country: None (occurrence: None)
  Receive Date: 20080623
  Receipt Date: 20080611
  Transmission Date: 20081010
  Serious: Yes (Other)
  Sender: FDA-Public Use
  Company Number: US-ELI_LILLY_AND_COMPANY-US200805002673

PATIENT
  Age: 53 Year
  Sex: Female

DRUGS (19)
  1. CYMBALTA [Suspect]
     Dosage: 60 MG, 2/D
  2. FLOMAX [Concomitant]
  3. RANITIDINE HCL [Concomitant]
  4. DEPAKOTE [Concomitant]
     Dosage: 1500 MG, UNK
  5. PHENTERMINE [Concomitant]
  6. MEDROXYPROGESTERONE [Concomitant]
  7. LEVOTHYROXINE SODIUM [Concomitant]
  8. SINGULAIR [Concomitant]
  9. DETULIN [Concomitant]
  10. PREFEST [Concomitant]
  11. OXYTROL [Concomitant]
  12. MUPIROCIN [Concomitant]
  13. TRIAMCINOLONE [Concomitant]
  14. IBUROFEN [Concomitant]
  15. ASTELIN [Concomitant]
  16. CLORAZEPATE DIPOTASSIUM [Concomitant]
     Dosage: 7.5 MG, 4/D
  17. METOPROLOL [Concomitant]
  18. VYTORIN [Concomitant]
  19. TEMAZEPAM [Concomitant]
     Dosage: 30 MG, UNK

REACTIONS (3)
  - JOINT SWELLING [None]
  - RASH GENERALISED [None]
  - WOUND INFECTION STAPHYLOCOCCAL [None]
